FAERS Safety Report 23898404 (Version 1)
Quarter: 2024Q2

REPORT INFORMATION
  Report Type: Spontaneous
  Country: US (occurrence: US)
  Receive Date: 20240524
  Receipt Date: 20240524
  Transmission Date: 20240716
  Serious: No
  Sender: FDA-Public Use
  Company Number: US-ABBVIE-5771326

PATIENT

DRUGS (2)
  1. RINVOQ [Suspect]
     Active Substance: UPADACITINIB
     Indication: Product used for unknown indication
     Route: 048
  2. RINVOQ [Suspect]
     Active Substance: UPADACITINIB
     Indication: Product used for unknown indication
     Route: 048

REACTIONS (7)
  - Pain [Not Recovered/Not Resolved]
  - Illness [Unknown]
  - Nasopharyngitis [Unknown]
  - Bronchitis [Unknown]
  - Influenza [Unknown]
  - Condition aggravated [Unknown]
  - Fatigue [Recovering/Resolving]
